FAERS Safety Report 12624542 (Version 1)
Quarter: 2016Q3

REPORT INFORMATION
  Report Type: Spontaneous
  Country: US (occurrence: None)
  Receive Date: 20160804
  Receipt Date: 20160804
  Transmission Date: 20161109
  Serious: No
  Sender: FDA-Public Use
  Company Number: None

PATIENT
  Sex: Male

DRUGS (2)
  1. OXYBUTININ [Suspect]
     Active Substance: OXYBUTYNIN
  2. OXYBUTININ ER [Suspect]
     Active Substance: OXYBUTYNIN

REACTIONS (3)
  - Urinary incontinence [None]
  - Drug ineffective [None]
  - Abdominal discomfort [None]
